FAERS Safety Report 19070550 (Version 4)
Quarter: 2021Q2

REPORT INFORMATION
  Report Type: Spontaneous
  Country: US (occurrence: US)
  Receive Date: 20210330
  Receipt Date: 20210428
  Transmission Date: 20210717
  Serious: Yes (Hospitalization, Other)
  Sender: FDA-Public Use
  Company Number: US-B.I. PHARMACEUTICALS,INC./RIDGEFIELD-2020-BI-048189

PATIENT
  Age: 77 Year
  Sex: Female

DRUGS (5)
  1. ADVAIR HFA [Concomitant]
     Active Substance: FLUTICASONE PROPIONATE\SALMETEROL XINAFOATE
     Indication: PRODUCT USED FOR UNKNOWN INDICATION
     Dosage: MORNING AND BEDTIME
  2. SPIRIVA RESPIMAT [Suspect]
     Active Substance: TIOTROPIUM BROMIDE
     Dosage: 2.5 MCG 3 SPRAYS DAILY
     Route: 055
     Dates: start: 202009
  3. SPIRIVA RESPIMAT [Suspect]
     Active Substance: TIOTROPIUM BROMIDE
     Indication: CHRONIC OBSTRUCTIVE PULMONARY DISEASE
     Dosage: 205 MCG 2 PUFFS ONCE A DAY
     Route: 055
     Dates: start: 2020
  4. SPIRIVA RESPIMAT [Suspect]
     Active Substance: TIOTROPIUM BROMIDE
     Dosage: 2 PUFFS DAILY
     Dates: start: 202101
  5. SPIRIVA RESPIMAT [Suspect]
     Active Substance: TIOTROPIUM BROMIDE
     Dosage: 1 PUFF IN AM AND 1 PUFF IN PM

REACTIONS (13)
  - Loss of consciousness [Recovered/Resolved]
  - Joint injury [Not Recovered/Not Resolved]
  - Bradykinesia [Unknown]
  - Chronic obstructive pulmonary disease [Not Recovered/Not Resolved]
  - Encephalitis autoimmune [Recovering/Resolving]
  - Balance disorder [Unknown]
  - Cough [Not Recovered/Not Resolved]
  - Cough [Not Recovered/Not Resolved]
  - Extra dose administered [Not Recovered/Not Resolved]
  - Headache [Unknown]
  - Extra dose administered [Recovered/Resolved]
  - Fatigue [Not Recovered/Not Resolved]
  - Multiple allergies [Not Recovered/Not Resolved]

NARRATIVE: CASE EVENT DATE: 2020
